FAERS Safety Report 5302732-X (Version None)
Quarter: 2007Q2

REPORT INFORMATION
  Report Type: 
  Country: None (occurrence: None)
  Receive Date: 20070419
  Receipt Date: 20070411
  Transmission Date: 20071010
  Serious: Yes (Hospitalization)
  Sender: FDA-Public Use
  Company Number: JP-PFIZER INC-2007029215

PATIENT
  Age: 78 Year
  Sex: Male

DRUGS (3)
  1. AMLODIPINE [Suspect]
     Dosage: DAILY DOSE:5MG
     Route: 048
  2. VALSARTAN [Suspect]
     Dosage: DAILY DOSE:80MG
     Route: 048
  3. NITOROL R [Suspect]
     Dosage: DAILY DOSE:40MG
     Route: 048

REACTIONS (1)
  - DELIRIUM [None]
